FAERS Safety Report 10063994 (Version 1)
Quarter: 2014Q2

REPORT INFORMATION
  Report Type: Spontaneous
  Country: US (occurrence: US)
  Receive Date: 20140408
  Receipt Date: 20140408
  Transmission Date: 20141212
  Serious: No
  Sender: FDA-Public Use
  Company Number: US-009507513-1404USA001001

PATIENT
  Age: 21 Year
  Sex: Male

DRUGS (3)
  1. ASMANEX TWISTHALER [Suspect]
     Indication: RESPIRATORY DISORDER
     Dosage: 1 PUFF, QD
     Route: 055
     Dates: start: 20140314
  2. PREDNISONE [Concomitant]
     Dosage: UNK
  3. PROAIR (ALBUTEROL SULFATE) [Concomitant]

REACTIONS (1)
  - Drug ineffective [Not Recovered/Not Resolved]
